FAERS Safety Report 22184001 (Version 3)
Quarter: 2024Q1

REPORT INFORMATION
  Report Type: Spontaneous
  Country: CA (occurrence: CA)
  Receive Date: 20230407
  Receipt Date: 20240211
  Transmission Date: 20240410
  Serious: Yes (Hospitalization, Other)
  Sender: FDA-Public Use
  Company Number: CA-VIIV HEALTHCARE LIMITED-CA2023045926

PATIENT
  Age: 43 Year
  Sex: Female

DRUGS (4)
  1. RILPIVIRINE [Suspect]
     Active Substance: RILPIVIRINE
     Indication: HIV infection
     Dosage: UNK UNK, Q2M,CABOTEGRAVIR 600MG/3ML RILPIVIRINE 900MG/3ML
     Route: 030
     Dates: start: 20220225
  2. RILPIVIRINE [Suspect]
     Active Substance: RILPIVIRINE
     Dosage: UNK UNK, Q2M,(600MG/3ML) CABOTEGRAVIR INJECTION AND (900MG/3ML) RILPIVIRINE INJECTION
     Route: 030
  3. CABOTEGRAVIR [Suspect]
     Active Substance: CABOTEGRAVIR
     Indication: HIV infection
     Dosage: UNK UNK, Q2M,CABOTEGRAVIR 600MG/3ML RILPIVIRINE 900MG/3ML
     Route: 030
     Dates: start: 20220225
  4. CABOTEGRAVIR [Suspect]
     Active Substance: CABOTEGRAVIR
     Dosage: UNK UNK, Q2M,(600MG/3ML) CABOTEGRAVIR INJECTION AND (900MG/3ML) RILPIVIRINE INJECTION
     Route: 030

REACTIONS (5)
  - Meningitis [Not Recovered/Not Resolved]
  - Rash erythematous [Recovered/Resolved]
  - Rash pruritic [Recovered/Resolved]
  - Rash [Recovered/Resolved]
  - Inappropriate schedule of product administration [Unknown]

NARRATIVE: CASE EVENT DATE: 20230101
